FAERS Safety Report 5663139-9 (Version None)
Quarter: 2008Q1

REPORT INFORMATION
  Report Type: 
  Country: None (occurrence: None)
  Receive Date: 20080313
  Receipt Date: 20080306
  Transmission Date: 20080703
  Serious: Yes (Hospitalization)
  Sender: FDA-Public Use
  Company Number: B0511922A

PATIENT
  Age: 18 Month
  Sex: Female

DRUGS (1)
  1. SULTANOL [Suspect]
     Indication: DRUG USE FOR UNKNOWN INDICATION
     Route: 048

REACTIONS (4)
  - DYSKINESIA [None]
  - EYE ROLLING [None]
  - PYREXIA [None]
  - TREMOR [None]
